FAERS Safety Report 9664150 (Version 1)
Quarter: 2013Q4

REPORT INFORMATION
  Report Type: Spontaneous
  Country: US (occurrence: US)
  Receive Date: 20131101
  Receipt Date: 20131101
  Transmission Date: 20140711
  Serious: No
  Sender: FDA-Public Use
  Company Number: US-009507513-1310USA014541

PATIENT
  Age: 22 Year
  Sex: Female
  Weight: 70.88 kg

DRUGS (1)
  1. NEXPLANON [Suspect]
     Indication: CONTRACEPTION
     Dosage: 68 MG, ROUTE LEFT ARM
     Route: 059
     Dates: start: 20131023, end: 20131029

REACTIONS (3)
  - Implant site pain [Unknown]
  - Implant site pain [Unknown]
  - Device expulsion [Unknown]
